FAERS Safety Report 9968586 (Version 1)
Quarter: 2014Q1

REPORT INFORMATION
  Report Type: Report from Study
  Country: US (occurrence: US)
  Receive Date: 20140306
  Receipt Date: 20140306
  Transmission Date: 20141002
  Serious: No
  Sender: FDA-Public Use
  Company Number: US-ABBVIE-13P-163-1147180-00

PATIENT
  Age: 67 Year
  Sex: Female

DRUGS (15)
  1. HUMIRA [Suspect]
     Indication: COLITIS ULCERATIVE
     Dates: start: 20130614
  2. DICYCLOMINE [Concomitant]
     Indication: COLITIS ULCERATIVE
     Dosage: 2 TABLETS DAILY
  3. APRISO [Concomitant]
     Indication: COLITIS ULCERATIVE
     Dosage: 4 TABLETS DAILY
  4. DELZICOL [Concomitant]
     Indication: COLITIS ULCERATIVE
     Dosage: 4 TABLETS DAILY
  5. ATORVASTATIN [Concomitant]
     Indication: BLOOD CHOLESTEROL INCREASED
     Dosage: 10 MG DAILY
  6. QUINAPRIL [Concomitant]
     Indication: HYPERTENSION
     Dosage: 40 MG DAILY
  7. MONTELUKAST [Concomitant]
     Indication: SINUS DISORDER
     Dosage: 10 MG DAILY
  8. ASPIRIN [Concomitant]
     Indication: PRODUCT USED FOR UNKNOWN INDICATION
     Dosage: 81 MG DAILY
  9. BOOST HIGH PROTEIN SHAKE [Concomitant]
     Indication: PRODUCT USED FOR UNKNOWN INDICATION
  10. I-PROMISE [Concomitant]
     Indication: PRODUCT USED FOR UNKNOWN INDICATION
     Dosage: 1 DAILY
  11. VITAMIN E [Concomitant]
     Indication: VITAMIN SUPPLEMENTATION
     Dosage: 400 IU DAILY
  12. MULTIVITAMIN [Concomitant]
     Indication: VITAMIN SUPPLEMENTATION
     Dosage: DAILY
  13. PROBIOTIC ACIDOPHILUS [Concomitant]
     Indication: PRODUCT USED FOR UNKNOWN INDICATION
     Dosage: 1 TABLET DAILY
  14. MUCINEX [Concomitant]
     Indication: SINUS DISORDER
  15. IMODIUM [Concomitant]
     Indication: DIARRHOEA

REACTIONS (3)
  - Fatigue [Recovering/Resolving]
  - Sinus operation [Recovering/Resolving]
  - Cough [Recovering/Resolving]
